FAERS Safety Report 14607154 (Version 2)
Quarter: 2018Q1

REPORT INFORMATION
  Report Type: Spontaneous
  Country: US (occurrence: US)
  Receive Date: 20180307
  Receipt Date: 20180309
  Transmission Date: 20180509
  Serious: Yes (Hospitalization)
  Sender: FDA-Public Use
  Company Number: US-BEH-2018088469

PATIENT
  Sex: Male
  Weight: 120.18 kg

DRUGS (36)
  1. THEOPHYLLINE [Concomitant]
     Active Substance: THEOPHYLLINE ANHYDROUS
  2. MELOXICAM. [Concomitant]
     Active Substance: MELOXICAM
  3. BETAMETHASONE. [Concomitant]
     Active Substance: BETAMETHASONE
  4. MAGNESIUM OXIDE. [Concomitant]
     Active Substance: MAGNESIUM OXIDE
  5. ASPIRIN. [Concomitant]
     Active Substance: ASPIRIN
  6. EPINEPHRINE. [Concomitant]
     Active Substance: EPINEPHRINE
  7. GABAPENTIN ABC [Concomitant]
  8. COUMADIN [Concomitant]
     Active Substance: WARFARIN SODIUM
  9. FOLIC ACID. [Concomitant]
     Active Substance: FOLIC ACID
  10. MONTELUKAST [Concomitant]
     Active Substance: MONTELUKAST SODIUM
  11. TRAMADOL. [Concomitant]
     Active Substance: TRAMADOL
  12. FLOMAX [Concomitant]
     Active Substance: TAMSULOSIN HYDROCHLORIDE
  13. ZEMAIRA [Suspect]
     Active Substance: .ALPHA.1-PROTEINASE INHIBITOR HUMAN
     Indication: ALPHA-1 ANTI-TRYPSIN DEFICIENCY
     Dosage: 60 MG/KG, QW
     Route: 042
     Dates: start: 20100610
  14. DIPHENHYDRAMINE. [Concomitant]
     Active Substance: DIPHENHYDRAMINE
  15. PREDNISONE. [Concomitant]
     Active Substance: PREDNISONE
  16. ALLOPURINOL. [Concomitant]
     Active Substance: ALLOPURINOL
  17. COLCRYS [Concomitant]
     Active Substance: COLCHICINE
  18. RANITIDINE. [Concomitant]
     Active Substance: RANITIDINE
  19. MULTIVITAMIN                       /00097801/ [Concomitant]
     Active Substance: VITAMINS
  20. TUDORZA PRESSAIR [Concomitant]
     Active Substance: ACLIDINIUM BROMIDE
  21. SODIUM CHLORIDE. [Concomitant]
     Active Substance: SODIUM CHLORIDE
  22. LEVOTHYROXINE. [Concomitant]
     Active Substance: LEVOTHYROXINE
  23. ISOSORBIDE MONONITE [Concomitant]
  24. CYANOCOBALAMIN. [Concomitant]
     Active Substance: CYANOCOBALAMIN
  25. ADVAIR HFA [Concomitant]
     Active Substance: FLUTICASONE PROPIONATE\SALMETEROL XINAFOATE
  26. HYDRALAZINE [Concomitant]
     Active Substance: HYDRALAZINE HYDROCHLORIDE
  27. LIPITOR [Concomitant]
     Active Substance: ATORVASTATIN CALCIUM
  28. AMIODARONE [Concomitant]
     Active Substance: AMIODARONE
  29. VITAMIN D2 [Concomitant]
     Active Substance: ERGOCALCIFEROL
  30. OMEPRAZOLE. [Concomitant]
     Active Substance: OMEPRAZOLE
  31. MUCINEX COUGH [Concomitant]
     Active Substance: DEXTROMETHORPHAN HYDROBROMIDE\GUAIFENESIN
  32. ZEMAIRA [Suspect]
     Active Substance: .ALPHA.1-PROTEINASE INHIBITOR HUMAN
     Dosage: UNK
     Route: 042
  33. BUMETANIDE. [Concomitant]
     Active Substance: BUMETANIDE
  34. DOCUSATE SODIUM. [Concomitant]
     Active Substance: DOCUSATE SODIUM
  35. ULORIC [Concomitant]
     Active Substance: FEBUXOSTAT
  36. OXYGEN. [Concomitant]
     Active Substance: OXYGEN

REACTIONS (2)
  - Pericardial effusion [Recovering/Resolving]
  - Pulmonary oedema [Unknown]
